FAERS Safety Report 5746602-1 (Version None)
Quarter: 2008Q2

REPORT INFORMATION
  Report Type: 
  Country: None (occurrence: None)
  Receive Date: 20080520
  Receipt Date: 20080509
  Transmission Date: 20081010
  Serious: Yes (Death, Hospitalization, Other)
  Sender: FDA-Public Use
  Company Number: 2008US000601

PATIENT
  Age: 62 Year
  Sex: Female

DRUGS (14)
  1. AMBISOME [Suspect]
     Indication: ZYGOMYCOSIS
     Dosage: 360 MG, UID/QD;IV NOS; 450 MG, UID/QD; 325 MG, UID/QD,IV NOS
     Route: 042
     Dates: start: 20071005, end: 20071017
  2. AMBISOME [Suspect]
     Indication: ZYGOMYCOSIS
     Dosage: 360 MG, UID/QD;IV NOS; 450 MG, UID/QD; 325 MG, UID/QD,IV NOS
     Route: 042
     Dates: start: 20071018, end: 20071019
  3. AMBISOME [Suspect]
     Indication: ZYGOMYCOSIS
     Dosage: 360 MG, UID/QD;IV NOS; 450 MG, UID/QD; 325 MG, UID/QD,IV NOS
     Route: 042
     Dates: start: 20071120, end: 20071129
  4. NOVAFIL(POSACONAZOLE) [Suspect]
     Indication: ZYGOMYCOSIS
     Dosage: 400 MG,BID, ORAL
     Route: 048
     Dates: start: 20071026, end: 20071124
  5. MEDROL [Concomitant]
  6. THEOPHYLLINE [Concomitant]
  7. ZOVIRAX [Concomitant]
  8. LOSEC (OMEPRAZOLE MAGNESIUM) [Concomitant]
  9. NEURONTIN [Concomitant]
  10. NEUROBION [Concomitant]
  11. FILICINE (FOLIC ACID) [Concomitant]
  12. CIPROFLOXACIN [Concomitant]
  13. BACTRIM DS [Concomitant]
  14. CLINDAMYCIN HCL [Concomitant]

REACTIONS (8)
  - ASPARTATE AMINOTRANSFERASE INCREASED [None]
  - BLOOD ALKALINE PHOSPHATASE INCREASED [None]
  - DISEASE PROGRESSION [None]
  - GAMMA-GLUTAMYLTRANSFERASE INCREASED [None]
  - HEPATOTOXICITY [None]
  - MYOCARDIAL INFARCTION [None]
  - RESPIRATORY FAILURE [None]
  - ZYGOMYCOSIS [None]
